FAERS Safety Report 20877843 (Version 1)
Quarter: 2022Q2

REPORT INFORMATION
  Report Type: Spontaneous
  Country: CN (occurrence: CN)
  Receive Date: 20220526
  Receipt Date: 20220526
  Transmission Date: 20220721
  Serious: Yes (Hospitalization)
  Sender: FDA-Public Use
  Company Number: CN-AstraZeneca-2022A188256

PATIENT
  Age: 29 Year
  Sex: Female

DRUGS (1)
  1. METOPROLOL [Suspect]
     Active Substance: METOPROLOL
     Indication: Hyperthyroidism
     Route: 048

REACTIONS (8)
  - Drug hypersensitivity [Unknown]
  - Muscular weakness [Unknown]
  - Gait disturbance [Unknown]
  - Therapeutic response changed [Unknown]
  - Oedema [Unknown]
  - Weight increased [Unknown]
  - Arrhythmia [Unknown]
  - Product use in unapproved indication [Unknown]
